FAERS Safety Report 7523441-2 (Version None)
Quarter: 2011Q2

REPORT INFORMATION
  Report Type: 
  Country: None (occurrence: None)
  Receive Date: 20110603
  Receipt Date: 20110602
  Transmission Date: 20111010
  Serious: Yes (Other)
  Sender: FDA-Public Use
  Company Number: US-UCBSA-024942

PATIENT
  Sex: Female
  Weight: 80.9 kg

DRUGS (5)
  1. IMURAN [Concomitant]
     Dosage: 2 TABS DAILY
     Route: 048
  2. CIMZIA [Suspect]
     Indication: CROHN'S DISEASE
     Route: 058
     Dates: start: 20090901
  3. GABAPENTIN [Concomitant]
     Dosage: 3 TABS 3 X DAILY
     Route: 048
  4. KLONOPIN [Concomitant]
     Dosage: AT HS
     Route: 048
  5. COLAZAL [Concomitant]
     Dosage: 2 TABS 2 X DAILY

REACTIONS (5)
  - ROAD TRAFFIC ACCIDENT [None]
  - LACERATION [None]
  - CONCUSSION [None]
  - SLEEP DISORDER [None]
  - CONTUSION [None]
